FAERS Safety Report 6127308-6 (Version None)
Quarter: 2009Q1

REPORT INFORMATION
  Report Type: 
  Country: None (occurrence: None)
  Receive Date: 20090319
  Receipt Date: 20090310
  Transmission Date: 20090719
  Serious: Yes (Other)
  Sender: FDA-Public Use
  Company Number: CIO8007246

PATIENT
  Age: 47 Year
  Sex: Female
  Weight: 77.1 kg

DRUGS (4)
  1. CREST SENSITIVITY WHITENING PLUS SCOPE TOOTHPASTE, MINTY FRESH FLAVOR( [Suspect]
     Indication: DENTAL DISORDER PROPHYLAXIS
     Dosage: 1 APPLIC, 1/DAY FOR 3 DAYS, INTRAORAL
     Route: 002
     Dates: start: 20080423, end: 20080425
  2. NEXIUM [Concomitant]
  3. METOPROLOL TARTRATE [Concomitant]
  4. CHOLESTRYRAMINE (COLESTYRAMINE) [Concomitant]

REACTIONS (4)
  - BURNING SENSATION [None]
  - HYPERSENSITIVITY [None]
  - LIP SWELLING [None]
  - SWOLLEN TONGUE [None]
